FAERS Safety Report 17856160 (Version 1)
Quarter: 2020Q2

REPORT INFORMATION
  Report Type: Spontaneous
  Country: FR (occurrence: FR)
  Receive Date: 20200603
  Receipt Date: 20200603
  Transmission Date: 20200714
  Serious: Yes (Other)
  Sender: FDA-Public Use
  Company Number: FR-MYLANLABS-2020M1053763

PATIENT
  Age: 65 Year
  Sex: Male

DRUGS (3)
  1. BACTRIM [Suspect]
     Active Substance: SULFAMETHOXAZOLE\TRIMETHOPRIM
     Indication: SUPERINFECTION BACTERIAL
     Dosage: NON PR?CIS?
     Route: 041
     Dates: start: 20200409, end: 20200417
  2. BACTRIM [Suspect]
     Active Substance: SULFAMETHOXAZOLE\TRIMETHOPRIM
     Indication: HERPES VIRUS INFECTION
  3. ACICLOVIR MYLAN 250 MG, POUDRE POUR SOLUTION INJECTABLE (I.V.) [Suspect]
     Active Substance: ACYCLOVIR
     Indication: HERPES VIRUS INFECTION
     Dosage: NON PR?CIS?
     Route: 041
     Dates: start: 20200407, end: 20200417

REACTIONS (1)
  - Dermatitis exfoliative generalised [Recovered/Resolved]

NARRATIVE: CASE EVENT DATE: 20200414
